FAERS Safety Report 12165394 (Version 1)
Quarter: 2016Q1

REPORT INFORMATION
  Report Type: Spontaneous
  Country: US (occurrence: US)
  Receive Date: 20160309
  Receipt Date: 20160309
  Transmission Date: 20160526
  Serious: No
  Sender: FDA-Public Use
  Company Number: US-BAYER-2016-046519

PATIENT
  Age: 30 Year
  Sex: Female

DRUGS (1)
  1. MAGNEVIST [Suspect]
     Active Substance: GADOPENTETATE DIMEGLUMINE
     Indication: ABSCESS
     Dosage: 1 X 15ML
     Route: 042
     Dates: start: 20160307, end: 20160307

REACTIONS (3)
  - Nausea [None]
  - Vomiting [None]
  - Off label use [None]

NARRATIVE: CASE EVENT DATE: 20160307
